FAERS Safety Report 24457253 (Version 1)
Quarter: 2024Q4

REPORT INFORMATION
  Report Type: Spontaneous
  Country: JP (occurrence: JP)
  Receive Date: 20241018
  Receipt Date: 20241018
  Transmission Date: 20250114
  Serious: Yes (Life-Threatening, Other)
  Sender: DR REDDYS
  Company Number: JP-RDY-LIT/JPN/24/0015357

PATIENT
  Sex: Female

DRUGS (4)
  1. AZACITIDINE [Suspect]
     Active Substance: AZACITIDINE
     Indication: Trisomy 21
     Dosage: CYCLIC TREATMENT AZACITIDINE 75 MG/M2 FOR 1 AND 2 CYCLE
  2. AZACITIDINE [Suspect]
     Active Substance: AZACITIDINE
     Indication: Acute myeloid leukaemia
  3. VENETOCLAX [Suspect]
     Active Substance: VENETOCLAX
     Indication: Trisomy 21
  4. VENETOCLAX [Suspect]
     Active Substance: VENETOCLAX
     Indication: Acute myeloid leukaemia

REACTIONS (8)
  - Neutropenia [Unknown]
  - Thrombocytopenia [Unknown]
  - Leukopenia [Unknown]
  - Anaemia [Unknown]
  - Febrile neutropenia [Unknown]
  - Alpha haemolytic streptococcal infection [Unknown]
  - Pneumonia fungal [Unknown]
  - Product use in unapproved indication [Unknown]
